FAERS Safety Report 5060475-4 (Version None)
Quarter: 2006Q3

REPORT INFORMATION
  Report Type: 
  Country: None (occurrence: None)
  Receive Date: 20060719
  Receipt Date: 20060719
  Transmission Date: 20061208
  Serious: Yes (Life-Threatening, Hospitalization)
  Sender: FDA-Public Use
  Company Number: None

PATIENT
  Sex: Male
  Weight: 26.3086 kg

DRUGS (6)
  1. CARBAMAZEPINE [Suspect]
     Indication: CONVULSION
     Dosage: 200 MG BID ORAL
     Route: 048
     Dates: start: 20051226, end: 20060303
  2. RISPERDAL [Concomitant]
  3. SINGULAIR [Concomitant]
  4. CONCERTA [Concomitant]
  5. LORATADINE [Concomitant]
  6. ALBUTEROL [Concomitant]

REACTIONS (1)
  - STEVENS-JOHNSON SYNDROME [None]
